FAERS Safety Report 9992807 (Version 2)
Quarter: 2014Q1

REPORT INFORMATION
  Report Type: Spontaneous
  Country: CN (occurrence: CN)
  Receive Date: 20140310
  Receipt Date: 20140310
  Transmission Date: 20141002
  Serious: Yes (Other)
  Sender: FDA-Public Use
  Company Number: CN-BAYER-2013-012296

PATIENT
  Age: 23 Year
  Sex: Female

DRUGS (2)
  1. LEVITRA [Suspect]
     Indication: PULMONARY ARTERIAL HYPERTENSION
     Dosage: 5 MG, BID
     Route: 048
  2. ANTITHROMBOTIC AGENTS [Concomitant]
     Indication: CARDIAC DISORDER
     Dosage: UNK
     Route: 048
     Dates: end: 201212

REACTIONS (3)
  - Exposure during pregnancy [None]
  - Off label use [None]
  - Abortion spontaneous [None]
